FAERS Safety Report 7018245 (Version 2)
Quarter: 2013Q1

REPORT INFORMATION
  Report Type: Report from Study
  Country: US (occurrence: US)
  Receive Date: 20090612
  Receipt Date: 20130201
  Transmission Date: 20140127
  Serious: No
  Sender: FDA-Public Use
  Company Number: US-ABBOTT-09P-163-0560803-00

PATIENT
  Age: 71 Year
  Sex: Female
  Weight: 90.8 kg

DRUGS (4)
  1. HUMIRA [Suspect]
     Indication: PSORIASIS
     Route: 058
     Dates: end: 201206
  2. HUMIRA [Suspect]
     Route: 058
     Dates: start: 201211
  3. TRAMADOL [Concomitant]
     Indication: SPONDYLITIS
  4. ASA [Concomitant]
     Indication: DISCOMFORT

REACTIONS (8)
  - Erythema [Unknown]
  - Local swelling [Unknown]
  - Pain [Unknown]
  - Sinus disorder [Unknown]
  - Joint swelling [Not Recovered/Not Resolved]
  - Feeling hot [Not Recovered/Not Resolved]
  - Psoriasis [Not Recovered/Not Resolved]
  - Pruritus [Not Recovered/Not Resolved]
